FAERS Safety Report 8230513 (Version 2)
Quarter: 2014Q2

REPORT INFORMATION
  Report Type: Spontaneous
  Country: US (occurrence: US)
  Receive Date: 20111106
  Receipt Date: 20140602
  Transmission Date: 20141212
  Serious: No
  Sender: FDA-Public Use
  Company Number: US-AMGEN-USASP2011042898

PATIENT
  Age: 58 Year
  Sex: Female
  Weight: 68.03 kg

DRUGS (3)
  1. ENBREL [Suspect]
     Indication: PSORIATIC ARTHROPATHY
     Dosage: 50 MG, QWK
     Route: 058
     Dates: start: 20050101
  2. ENBREL [Suspect]
     Indication: PSORIASIS
  3. ENBREL [Suspect]
     Indication: RHEUMATOID ARTHRITIS

REACTIONS (10)
  - Finger deformity [Not Recovered/Not Resolved]
  - Peripheral swelling [Not Recovered/Not Resolved]
  - Fall [Not Recovered/Not Resolved]
  - Joint instability [Not Recovered/Not Resolved]
  - Limb injury [Not Recovered/Not Resolved]
  - Pharyngeal disorder [Unknown]
  - Wheezing [Unknown]
  - Sinusitis [Unknown]
  - Fungal infection [Unknown]
  - Herpes zoster [Unknown]
